FAERS Safety Report 26066312 (Version 1)
Quarter: 2025Q4

REPORT INFORMATION
  Report Type: Spontaneous
  Country: GB (occurrence: GB)
  Receive Date: 20251119
  Receipt Date: 20251119
  Transmission Date: 20260118
  Serious: Yes (Other)
  Sender: APELLIS PHARMACEUTICALS
  Company Number: GB-BIOVITRUM-2025-GB-015909

PATIENT

DRUGS (1)
  1. PEGCETACOPLAN [Suspect]
     Active Substance: PEGCETACOPLAN
     Indication: Immune-complex membranoproliferative glomerulonephritis

REACTIONS (6)
  - Off label use [Recovered/Resolved]
  - Treatment noncompliance [Unknown]
  - Urine protein/creatinine ratio increased [Unknown]
  - Renal impairment [Unknown]
  - Blood creatinine increased [Unknown]
  - Laboratory test abnormal [Unknown]
